FAERS Safety Report 5102733-0 (Version None)
Quarter: 2006Q3

REPORT INFORMATION
  Report Type: 
  Country: None (occurrence: None)
  Receive Date: 20060907
  Receipt Date: 20060822
  Transmission Date: 20061208
  Serious: Yes (Hospitalization)
  Sender: FDA-Public Use
  Company Number: 112294ISR

PATIENT
  Age: 57 Year
  Sex: Female

DRUGS (4)
  1. METHOTREXATE [Suspect]
     Indication: RHEUMATOID ARTHRITIS
     Dosage: 2.5 MILLIGRAM QW
     Dates: start: 20031117, end: 20060412
  2. FOLIC ACID [Concomitant]
  3. GLUCOSAMINE [Concomitant]
  4. FISH OIL [Concomitant]

REACTIONS (1)
  - MALIGNANT MELANOMA [None]
